FAERS Safety Report 6174234-2 (Version None)
Quarter: 2009Q2

REPORT INFORMATION
  Report Type: 
  Country: None (occurrence: None)
  Receive Date: 20090430
  Receipt Date: 20080319
  Transmission Date: 20091009
  Serious: No
  Sender: FDA-Public Use
  Company Number: US-ASTRAZENECA-2008UW05613

PATIENT
  Age: 79 Year
  Sex: Female
  Weight: 45.4 kg

DRUGS (6)
  1. NEXIUM [Suspect]
     Indication: NAUSEA
     Route: 048
     Dates: start: 20070101
  2. NEXIUM [Suspect]
     Indication: HYPERHIDROSIS
     Route: 048
     Dates: start: 20070101
  3. NEXIUM [Suspect]
     Indication: TREMOR
     Route: 048
     Dates: start: 20070101
  4. PREMARIN [Concomitant]
  5. LIPITOR [Concomitant]
  6. CARTIA XT [Concomitant]

REACTIONS (1)
  - BURNING SENSATION [None]
